FAERS Safety Report 11105786 (Version 2)
Quarter: 2015Q2

REPORT INFORMATION
  Report Type: Spontaneous
  Country: FR (occurrence: FR)
  Receive Date: 20150512
  Receipt Date: 20150512
  Transmission Date: 20150821
  Serious: Yes (Death, Life-Threatening, Other)
  Sender: FDA-Public Use
  Company Number: FR-ALVOGEN-2015AL002062

PATIENT
  Age: 93 Year
  Sex: Female

DRUGS (13)
  1. TEMERIT [Concomitant]
     Active Substance: NEBIVOLOL
     Indication: PRODUCT USED FOR UNKNOWN INDICATION
  2. KARDEGIC [Concomitant]
     Active Substance: ASPIRIN LYSINE
     Indication: PRODUCT USED FOR UNKNOWN INDICATION
  3. MORPHINE [Concomitant]
     Active Substance: MORPHINE
     Indication: PAIN
  4. CALCIPARINE [Concomitant]
     Active Substance: HEPARIN CALCIUM
     Indication: PRODUCT USED FOR UNKNOWN INDICATION
  5. RASILEZ [Concomitant]
     Active Substance: ALISKIREN
     Indication: PRODUCT USED FOR UNKNOWN INDICATION
  6. ESOMEPRAZOLE MAGNESIUM. [Concomitant]
     Active Substance: ESOMEPRAZOLE MAGNESIUM
     Indication: PRODUCT USED FOR UNKNOWN INDICATION
  7. TENORMIN [Suspect]
     Active Substance: ATENOLOL
     Indication: PRODUCT USED FOR UNKNOWN INDICATION
     Route: 042
     Dates: start: 20130218, end: 20130228
  8. LAROXYL [Concomitant]
     Active Substance: AMITRIPTYLINE
     Indication: PRODUCT USED FOR UNKNOWN INDICATION
  9. NICARDIPINE HYDROCHLORIDE. [Concomitant]
     Active Substance: NICARDIPINE HYDROCHLORIDE
     Indication: PRODUCT USED FOR UNKNOWN INDICATION
     Dates: start: 20130211
  10. PERFALGAN [Concomitant]
     Active Substance: ACETAMINOPHEN
     Indication: PRODUCT USED FOR UNKNOWN INDICATION
  11. ACETYLSALICYLIC ACID W/AMINOACETIC ACID [Concomitant]
     Indication: PRODUCT USED FOR UNKNOWN INDICATION
  12. METRONIDAZOLE BENZOATE [Concomitant]
     Active Substance: METRONIDAZOLE BENZOATE
     Indication: PRODUCT USED FOR UNKNOWN INDICATION
     Dates: end: 20130222
  13. LORAZEPAM. [Concomitant]
     Active Substance: LORAZEPAM
     Indication: PRODUCT USED FOR UNKNOWN INDICATION

REACTIONS (2)
  - Sepsis [Fatal]
  - Bradycardia [Fatal]
